FAERS Safety Report 21509596 (Version 1)
Quarter: 2022Q4

REPORT INFORMATION
  Report Type: Spontaneous
  Country: CN (occurrence: CN)
  Receive Date: 20221026
  Receipt Date: 20221026
  Transmission Date: 20230113
  Serious: Yes (Hospitalization, Other)
  Sender: FDA-Public Use
  Company Number: CN-SA-SAC20221025001047

PATIENT
  Age: 65 Year
  Sex: Male

DRUGS (4)
  1. OXALIPLATIN [Suspect]
     Active Substance: OXALIPLATIN
     Indication: Chemotherapy
     Dosage: 150MG,QD
     Route: 041
     Dates: start: 20220729, end: 20220729
  2. LEUCOVORIN CALCIUM [Concomitant]
     Active Substance: LEUCOVORIN CALCIUM
     Indication: Chemotherapy
     Dosage: 0.60G,QD
     Route: 041
     Dates: start: 20220729, end: 20220729
  3. FLUOROURACIL [Concomitant]
     Active Substance: FLUOROURACIL
     Dosage: 0.4 G
     Route: 041
  4. FLUOROURACIL [Concomitant]
     Active Substance: FLUOROURACIL
     Dosage: 3.5 G, QOW

REACTIONS (2)
  - Upper gastrointestinal haemorrhage [Recovering/Resolving]
  - Gastrointestinal disorder [Recovering/Resolving]

NARRATIVE: CASE EVENT DATE: 20220802
